FAERS Safety Report 6573278-6 (Version None)
Quarter: 2010Q1

REPORT INFORMATION
  Report Type: 
  Country: None (occurrence: None)
  Receive Date: 20100208
  Receipt Date: 20100128
  Transmission Date: 20100710
  Serious: Yes (Hospitalization)
  Sender: FDA-Public Use
  Company Number: ES-JNJFOC-20100111810

PATIENT
  Age: 52 Year
  Sex: Male

DRUGS (8)
  1. REMICADE [Suspect]
     Indication: RHEUMATOID ARTHRITIS
     Route: 042
  2. REMICADE [Suspect]
     Route: 042
  3. REMICADE [Suspect]
     Route: 042
  4. URBASON [Interacting]
     Indication: DRUG USE FOR UNKNOWN INDICATION
  5. ADOLONTA [Concomitant]
  6. AIRTAL [Concomitant]
  7. FOSAVANCE [Concomitant]
  8. MASTICAL [Concomitant]

REACTIONS (2)
  - DRUG INTERACTION [None]
  - MENINGITIS CRYPTOCOCCAL [None]
